FAERS Safety Report 5171574-0 (Version None)
Quarter: 2006Q4

REPORT INFORMATION
  Report Type: 
  Country: None (occurrence: None)
  Receive Date: 20061208
  Receipt Date: 20061208
  Transmission Date: 20070319
  Serious: No
  Sender: FDA-Public Use
  Company Number: None

PATIENT
  Sex: Female

DRUGS (2)
  1. ZOLOFT [Suspect]
     Indication: ANXIETY
     Dosage: 50 MG DAILY PO
     Route: 048
     Dates: start: 20061116, end: 20061120
  2. ZOLOFT [Suspect]
     Indication: DEPRESSION
     Dosage: 50 MG DAILY PO
     Route: 048
     Dates: start: 20061116, end: 20061120

REACTIONS (3)
  - BRUXISM [None]
  - HEADACHE [None]
  - NECK PAIN [None]
